FAERS Safety Report 17371896 (Version 1)
Quarter: 2020Q1

REPORT INFORMATION
  Report Type: Spontaneous
  Country: US (occurrence: US)
  Receive Date: 20200121
  Receipt Date: 20200121
  Transmission Date: 20200409
  Serious: No
  Sender: FDA-Public Use
  Company Number: None

PATIENT

DRUGS (1)
  1. PIQRAY [Suspect]
     Active Substance: ALPELISIB
     Route: 048
     Dates: start: 201801

REACTIONS (1)
  - Product use in unapproved indication [None]

NARRATIVE: CASE EVENT DATE: 20200121
